FAERS Safety Report 4432106-5 (Version None)
Quarter: 2004Q3

REPORT INFORMATION
  Report Type: 
  Country: None (occurrence: None)
  Receive Date: 20040818
  Receipt Date: 20040805
  Transmission Date: 20050211
  Serious: Yes (Hospitalization, Other)
  Sender: FDA-Public Use
  Company Number: 2004051684

PATIENT
  Age: 31 Year
  Sex: Female

DRUGS (2)
  1. LIPITOR [Suspect]
     Indication: BLOOD CHOLESTEROL
     Dosage: 40 MG, ORAL
     Route: 048
     Dates: end: 20040701
  2. CONTRACEPTIVE UNSPECIFIED, (CONTRACEPTIVE UNSPECIFIED) [Concomitant]

REACTIONS (5)
  - ABASIA [None]
  - DERMATOMYOSITIS [None]
  - ERYTHEMA MULTIFORME [None]
  - LIVER FUNCTION TEST ABNORMAL [None]
  - RHABDOMYOLYSIS [None]
